FAERS Safety Report 23899019 (Version 7)
Quarter: 2024Q4

REPORT INFORMATION
  Report Type: Report from Study
  Country: CA (occurrence: CA)
  Receive Date: 20240525
  Receipt Date: 20241113
  Transmission Date: 20250114
  Serious: Yes (Other)
  Sender: JOHNSON AND JOHNSON
  Company Number: CA-JNJFOC-20240365967

PATIENT
  Age: 70 Year
  Sex: Female

DRUGS (9)
  1. TECVAYLI [Suspect]
     Active Substance: TECLISTAMAB-CQYV
     Indication: Plasma cell myeloma
     Route: 058
     Dates: start: 20240205
  2. TECVAYLI [Suspect]
     Active Substance: TECLISTAMAB-CQYV
     Route: 058
     Dates: start: 20240222
  3. TECVAYLI [Suspect]
     Active Substance: TECLISTAMAB-CQYV
     Route: 058
     Dates: start: 20240606
  4. TECVAYLI [Suspect]
     Active Substance: TECLISTAMAB-CQYV
     Route: 058
     Dates: start: 20240222
  5. VALACYCLOVIR HYDROCHLORIDE [Concomitant]
     Active Substance: VALACYCLOVIR HYDROCHLORIDE
  6. APIXABAN [Concomitant]
     Active Substance: APIXABAN
  7. GRANISETRON [Concomitant]
     Active Substance: GRANISETRON
  8. METOCLOPRAMIDE [Concomitant]
     Active Substance: METOCLOPRAMIDE
  9. ZOPICLONE [Concomitant]
     Active Substance: ZOPICLONE

REACTIONS (6)
  - Skin cancer [Unknown]
  - Skin cancer [Recovering/Resolving]
  - Nasopharyngitis [Recovering/Resolving]
  - Nasal congestion [Recovering/Resolving]
  - Cough [Not Recovered/Not Resolved]
  - Tendon disorder [Unknown]

NARRATIVE: CASE EVENT DATE: 20240318
